FAERS Safety Report 8419536-1 (Version None)
Quarter: 2012Q2

REPORT INFORMATION
  Report Type: 
  Country: None (occurrence: None)
  Receive Date: 20120607
  Receipt Date: 20120319
  Transmission Date: 20120825
  Serious: Yes (Life-Threatening, Hospitalization)
  Sender: FDA-Public Use
  Company Number: US-BRISTOL-MYERS SQUIBB COMPANY-16369449

PATIENT
  Age: 51 Year
  Sex: Female
  Weight: 62 kg

DRUGS (14)
  1. ASPIRIN [Concomitant]
  2. FLONASE [Concomitant]
  3. SIMVASTATIN [Concomitant]
  4. EMTRICITABINE [Concomitant]
  5. OXYCODONE HCL [Concomitant]
  6. SUSTIVA [Suspect]
  7. NEPHROCAPS [Concomitant]
  8. SEVELAMER HCL [Concomitant]
  9. FLUCONAZOLE [Concomitant]
  10. BUPROPRION HCL [Concomitant]
  11. NOVOLOG [Concomitant]
  12. LOSARTAN [Concomitant]
  13. TENOFOVIR DISOPROXIL FUMARATE [Concomitant]
  14. LOPRESSOR [Concomitant]

REACTIONS (1)
  - DYSPNOEA [None]
